FAERS Safety Report 9752109 (Version 2)
Quarter: 2014Q1

REPORT INFORMATION
  Report Type: Spontaneous
  Country: GB (occurrence: None)
  Receive Date: 20131211
  Receipt Date: 20140326
  Transmission Date: 20141002
  Serious: Yes (Death, Other)
  Sender: FDA-Public Use
  Company Number: FK201305227

PATIENT
  Age: 65 Year
  Sex: Female
  Weight: 68 kg

DRUGS (6)
  1. ANASTROZOLE [Suspect]
     Indication: BREAST CANCER
     Route: 048
     Dates: start: 20130726, end: 20131017
  2. AMLODIPINE [Concomitant]
  3. ATENOLOL (ATENOLOL) [Concomitant]
  4. IBUPROFEN (IBUPROFEN) [Concomitant]
  5. INDAPAMIDE (INDAPAMIDE) [Concomitant]
  6. RAMIPRIL (RAMIPRIL) [Concomitant]

REACTIONS (3)
  - Hair growth abnormal [None]
  - Hair colour changes [None]
  - Ischaemic stroke [None]
